FAERS Safety Report 15125494 (Version 1)
Quarter: 2018Q3

REPORT INFORMATION
  Report Type: Report from Study
  Country: US (occurrence: US)
  Receive Date: 20180710
  Receipt Date: 20180710
  Transmission Date: 20181010
  Serious: Yes (Other)
  Sender: FDA-Public Use
  Company Number: US-AUROBINDO-AUR-APL-2018-033706

PATIENT
  Age: 9 Year
  Sex: Male

DRUGS (2)
  1. CLONIDINE. [Suspect]
     Active Substance: CLONIDINE
     Indication: BLOOD GROWTH HORMONE
     Dosage: 0.1 MILLIGRAM/SQ. METER, (MAXIMUM DOSE 0.1 MG)
     Route: 048
  2. ARGININE [Suspect]
     Active Substance: ARGININE
     Indication: BLOOD GROWTH HORMONE
     Dosage: 0.5 G/KG, (MAXIMUM DOSE 30G)
     Route: 042

REACTIONS (1)
  - Haematuria [Recovered/Resolved]
